FAERS Safety Report 4395961-3 (Version None)
Quarter: 2004Q3

REPORT INFORMATION
  Report Type: 
  Country: None (occurrence: None)
  Receive Date: 20040707
  Receipt Date: 20040623
  Transmission Date: 20050211
  Serious: Yes (Hospitalization)
  Sender: FDA-Public Use
  Company Number: 04P-087-0261952-00

PATIENT
  Age: 66 Year
  Sex: Male

DRUGS (6)
  1. TRICOR [Suspect]
     Indication: HYPERLIPIDAEMIA
     Dosage: 150 MG, 1 IN 1 D, PER ORAL
     Route: 048
     Dates: start: 20040402, end: 20040427
  2. ALLOPURINOL [Concomitant]
  3. URALYT [Concomitant]
  4. POTASSIUM CITRATE [Concomitant]
  5. SODIUM CITRATE [Concomitant]
  6. TERBINAFINE HCL [Concomitant]

REACTIONS (1)
  - HEPATITIS ACUTE [None]
